FAERS Safety Report 14913693 (Version 1)
Quarter: 2018Q2

REPORT INFORMATION
  Report Type: Spontaneous
  Country: US (occurrence: US)
  Receive Date: 20180501
  Receipt Date: 20180501
  Transmission Date: 20180711
  Serious: No
  Sender: FDA-Public Use
  Company Number: None

PATIENT
  Age: 39 Year
  Sex: Female

DRUGS (4)
  1. CONCERTA ER 36MG [Concomitant]
  2. LISINOPRIL. [Concomitant]
     Active Substance: LISINOPRIL
  3. ALPRAZOLAM. [Suspect]
     Active Substance: ALPRAZOLAM
     Indication: ANXIETY
     Route: 048
     Dates: start: 20180427, end: 20180430
  4. FLUTICASONE NASAL SPRAY [Concomitant]
     Active Substance: FLUTICASONE

REACTIONS (5)
  - Panic attack [None]
  - Product substitution issue [None]
  - Anxiety [None]
  - Product quality issue [None]
  - Drug ineffective [None]
